FAERS Safety Report 6468282-2 (Version None)
Quarter: 2009Q4

REPORT INFORMATION
  Report Type: 
  Country: None (occurrence: None)
  Receive Date: 20091130
  Receipt Date: 20091110
  Transmission Date: 20100525
  Serious: Yes (Hospitalization, Other)
  Sender: FDA-Public Use
  Company Number: AUR-APL-2009-01261

PATIENT
  Age: 76 Year
  Sex: Male

DRUGS (4)
  1. TOPIRAMATE [Suspect]
     Indication: TRIGEMINAL NEURALGIA
  2. CARBAMAZEPINE [Concomitant]
  3. ENALAPRIL [Concomitant]
  4. GLYBURIDE [Concomitant]

REACTIONS (11)
  - ACIDOSIS HYPERCHLORAEMIC [None]
  - BASE EXCESS [None]
  - CHILLS [None]
  - HAEMOGLOBIN DECREASED [None]
  - HEPATIC STEATOSIS [None]
  - HYPONATRAEMIA [None]
  - KLEBSIELLA INFECTION [None]
  - LEUKOCYTOSIS [None]
  - METABOLIC ACIDOSIS [None]
  - PYREXIA [None]
  - RENAL TUBULAR ACIDOSIS [None]
